FAERS Safety Report 5303506-6 (Version None)
Quarter: 2007Q2

REPORT INFORMATION
  Report Type: 
  Country: None (occurrence: None)
  Receive Date: 20070420
  Receipt Date: 20070413
  Transmission Date: 20071010
  Serious: Yes (Hospitalization, Other)
  Sender: FDA-Public Use
  Company Number: DK-PFIZER INC-2007030490

PATIENT
  Age: 56 Year
  Sex: Female

DRUGS (2)
  1. TOLTERODINE [Suspect]
     Indication: HYPERTONIC BLADDER
     Route: 048
     Dates: start: 20050401
  2. PHENYTOIN [Concomitant]

REACTIONS (5)
  - DRUG LEVEL CHANGED [None]
  - EAR HAEMORRHAGE [None]
  - EPILEPSY [None]
  - HEMIPARESIS [None]
  - MEMORY IMPAIRMENT [None]
